FAERS Safety Report 6791171-0 (Version None)
Quarter: 2010Q2

REPORT INFORMATION
  Report Type: 
  Country: None (occurrence: None)
  Receive Date: 20100624
  Receipt Date: 20100612
  Transmission Date: 20101027
  Serious: Yes (Other)
  Sender: FDA-Public Use
  Company Number: US-PFIZER INC-2010074491

PATIENT
  Sex: Female
  Weight: 65.76 kg

DRUGS (4)
  1. CHANTIX [Suspect]
     Indication: SMOKING CESSATION THERAPY
     Dosage: UNK
     Route: 048
     Dates: start: 20100610
  2. BUSPAR [Concomitant]
     Indication: ANXIETY
     Dosage: 30 MG, 1X/DAY
  3. TEGRETOL [Concomitant]
     Indication: BIPOLAR DISORDER
     Dosage: 200 MG, 1QAM, 2QPM
     Route: 048
  4. PROZAC [Concomitant]
     Indication: DEPRESSION
     Dosage: 80 MG, 1X/DAY

REACTIONS (1)
  - PAINFUL RESPIRATION [None]
